FAERS Safety Report 12484283 (Version 2)
Quarter: 2016Q3

REPORT INFORMATION
  Report Type: Report from Study
  Country: US (occurrence: US)
  Receive Date: 20160621
  Receipt Date: 20160701
  Transmission Date: 20161109
  Serious: Yes (Hospitalization)
  Sender: FDA-Public Use
  Company Number: US-VERTEX PHARMACEUTICALS-2016-003828

PATIENT
  Age: 14 Year
  Sex: Female
  Weight: 44 kg

DRUGS (19)
  1. HYPERSAL [Concomitant]
     Dosage: MIX 2 ML WITH 2ML OF 3% SODIUM CHLORIDE AND NEBULIZE, BID
     Route: 055
  2. VENTOLIN HFA [Concomitant]
     Active Substance: ALBUTEROL SULFATE
     Indication: COUGH
     Dosage: INHALE 2 PUFFS EVERY 4 HOURS , PRN
  3. HUMULIN NOS [Concomitant]
     Active Substance: INSULIN HUMAN
     Dosage: INJECT 20 UNITS, 6 PEN EVERY EVENING, 3 MO SUPPLY
     Route: 058
  4. CREON [Concomitant]
     Active Substance: PANCRELIPASE AMYLASE\PANCRELIPASE LIPASE\PANCRELIPASE PROTEASE
     Dosage: 4 WITH MEAL 2 WITH SNACKS
     Route: 048
  5. GLUCAGON EMERGENCY KIT [Concomitant]
     Active Substance: GLUCAGON
     Dosage: INJECT 1 MG, PRN
  6. TOBI [Concomitant]
     Active Substance: TOBRAMYCIN
  7. NASONEX [Concomitant]
     Active Substance: MOMETASONE FUROATE
     Dosage: 1 SPARAY EACH NOSTRIL
     Route: 055
  8. ACTIGALL [Concomitant]
     Active Substance: URSODIOL
     Dosage: 7 ML, QD
     Route: 048
  9. VENTOLIN HFA [Concomitant]
     Active Substance: ALBUTEROL SULFATE
     Indication: WHEEZING
  10. ZITHROMAX [Concomitant]
     Active Substance: AZITHROMYCIN DIHYDRATE
     Dosage: 1 DF, ON MONDAY, WEDNESDAY AND FRIDAY
     Route: 048
  11. HYPERTONIC SALINE SOLUTION [Concomitant]
     Active Substance: SODIUM CHLORIDE
     Dosage: MIX 2 ML WITH 2 ML OF 10% SODIUM CHLORIDE AND NEBULIZE, BID
     Route: 055
  12. PEPTAMEN [Concomitant]
     Dosage: 1000 ML BY G-TUBE, QD
  13. PULMOZYME [Concomitant]
     Active Substance: DORNASE ALFA
     Dosage: INHALE ONE VIAL(1 MG/ML), QD
  14. FLONASE [Concomitant]
     Active Substance: FLUTICASONE PROPIONATE
     Dosage: 1 SPRAY EACH NOSTRIL DAILY
     Route: 055
  15. ORKAMBI [Suspect]
     Active Substance: IVACAFTOR\LUMACAFTOR
     Indication: CYSTIC FIBROSIS
     Dosage: 2 DF (400/250 MG), BID
     Route: 048
     Dates: start: 20150725
  16. PREVACID [Concomitant]
     Active Substance: LANSOPRAZOLE
     Dosage: 1 DF, BID
     Route: 048
  17. PROAIR HFA [Concomitant]
     Active Substance: ALBUTEROL SULFATE
     Dosage: 4 PUFFS, TID
     Route: 055
  18. ADEKS [Concomitant]
     Dosage: 1 DF, QD
     Route: 048
  19. PREDNISONE. [Concomitant]
     Active Substance: PREDNISONE
     Dosage: 30 MG, QD

REACTIONS (4)
  - Dysmenorrhoea [Not Recovered/Not Resolved]
  - Menorrhagia [Not Recovered/Not Resolved]
  - Pneumonia staphylococcal [Recovering/Resolving]
  - Decreased appetite [Unknown]

NARRATIVE: CASE EVENT DATE: 20160504
